FAERS Safety Report 9972305 (Version 1)
Quarter: 2014Q1

REPORT INFORMATION
  Report Type: Spontaneous
  Country: US (occurrence: None)
  Receive Date: 20140305
  Receipt Date: 20140305
  Transmission Date: 20141002
  Serious: Yes (Hospitalization, Other)
  Sender: FDA-Public Use
  Company Number: None

PATIENT
  Age: 64 Year
  Sex: Male

DRUGS (3)
  1. PROPOFOL 80MG [Suspect]
     Route: 041
  2. DUONEB [Concomitant]
  3. SIMVASTATIN [Concomitant]

REACTIONS (2)
  - Cardiac arrest [None]
  - Pulse absent [None]
